FAERS Safety Report 9878180 (Version 1)
Quarter: 2014Q1

REPORT INFORMATION
  Report Type: Spontaneous
  Country: GB (occurrence: GB)
  Receive Date: 20140206
  Receipt Date: 20140206
  Transmission Date: 20141002
  Serious: Yes (Life-Threatening, Other)
  Sender: FDA-Public Use
  Company Number: GB-PFIZER INC-2014031865

PATIENT
  Sex: Female

DRUGS (1)
  1. PREGABALIN [Suspect]
     Indication: NEURALGIA
     Dosage: UNK
     Route: 048

REACTIONS (2)
  - Convulsion [Recovered/Resolved]
  - Drug abuse [Unknown]
